FAERS Safety Report 19473544 (Version 1)
Quarter: 2021Q2

REPORT INFORMATION
  Report Type: Spontaneous
  Country: BR (occurrence: BR)
  Receive Date: 20210629
  Receipt Date: 20210629
  Transmission Date: 20210717
  Serious: Yes (Other)
  Sender: FDA-Public Use
  Company Number: BR-ASTRAZENECA-2021A561576

PATIENT
  Sex: Male

DRUGS (1)
  1. SYMBICORT [Suspect]
     Active Substance: BUDESONIDE\FORMOTEROL FUMARATE DIHYDRATE
     Indication: COVID-19 TREATMENT
     Dosage: 160/4.5 MCG, TWO JETS IN THE MORNING AND TWO JETS IN THE AFTERNOON
     Route: 055

REACTIONS (3)
  - Product administration error [Not Recovered/Not Resolved]
  - Device malfunction [Unknown]
  - COVID-19 pneumonia [Unknown]
